FAERS Safety Report 7502564-8 (Version None)
Quarter: 2011Q2

REPORT INFORMATION
  Report Type: 
  Country: None (occurrence: None)
  Receive Date: 20110525
  Receipt Date: 20110520
  Transmission Date: 20111010
  Serious: Yes (Hospitalization, Other)
  Sender: FDA-Public Use
  Company Number: US-PFIZER INC-2011110610

PATIENT
  Sex: Female

DRUGS (1)
  1. AMLODIPINE BESYLATE [Suspect]
     Dosage: UNK

REACTIONS (3)
  - OEDEMA PERIPHERAL [None]
  - SKIN FISSURES [None]
  - CELLULITIS [None]
